FAERS Safety Report 17723022 (Version 1)
Quarter: 2020Q2

REPORT INFORMATION
  Report Type: Spontaneous
  Country: US (occurrence: US)
  Receive Date: 20200429
  Receipt Date: 20200429
  Transmission Date: 20200714
  Serious: Yes (Other)
  Sender: FDA-Public Use
  Company Number: US-GW PHARMA-202004USGW01551

PATIENT

DRUGS (3)
  1. EPIDIOLEX [Suspect]
     Active Substance: CANNABIDIOL
     Dosage: 560 MILLIGRAM, BID (TITRATING HIGHER DOSE)
     Route: 048
     Dates: start: 202004, end: 202004
  2. EPIDIOLEX [Suspect]
     Active Substance: CANNABIDIOL
     Indication: PRODUCT USED FOR UNKNOWN INDICATION
     Dosage: 260 MILLIGRAM, BID
     Route: 048
     Dates: start: 20200403, end: 202004
  3. EPIDIOLEX [Suspect]
     Active Substance: CANNABIDIOL
     Dosage: 260 MILLIGRAM, BID (DECREASED DOSE)
     Route: 048
     Dates: start: 202004

REACTIONS (1)
  - Diarrhoea [Recovered/Resolved]

NARRATIVE: CASE EVENT DATE: 202004
